FAERS Safety Report 10460054 (Version 1)
Quarter: 2014Q3

REPORT INFORMATION
  Report Type: Spontaneous
  Country: US (occurrence: US)
  Receive Date: 20140917
  Receipt Date: 20140917
  Transmission Date: 20150326
  Serious: Yes (Hospitalization)
  Sender: FDA-Public Use
  Company Number: US-GILEAD-2014-0115428

PATIENT
  Age: 35 Year
  Sex: Female

DRUGS (16)
  1. LOVENOX [Concomitant]
     Active Substance: ENOXAPARIN SODIUM
  2. TRAZODONE [Concomitant]
     Active Substance: TRAZODONE HYDROCHLORIDE
  3. SEROQUEL [Concomitant]
     Active Substance: QUETIAPINE FUMARATE
  4. ASTELIN                            /00884002/ [Concomitant]
  5. SPIRONOLACTONE. [Concomitant]
     Active Substance: SPIRONOLACTONE
  6. EFFEXOR [Concomitant]
     Active Substance: VENLAFAXINE HYDROCHLORIDE
  7. XANAX [Concomitant]
     Active Substance: ALPRAZOLAM
  8. REVATIO [Concomitant]
     Active Substance: SILDENAFIL CITRATE
  9. SYMBICORT [Concomitant]
     Active Substance: BUDESONIDE\FORMOTEROL FUMARATE DIHYDRATE
  10. TRAVATAN Z [Concomitant]
     Active Substance: TRAVOPROST
  11. LETAIRIS [Suspect]
     Active Substance: AMBRISENTAN
     Indication: COR PULMONALE CHRONIC
     Dosage: 10 MG, QD
     Route: 065
     Dates: start: 20140403
  12. FUROSEMIDE. [Concomitant]
     Active Substance: FUROSEMIDE
  13. TYVASO [Concomitant]
     Active Substance: TREPROSTINIL
  14. PROAIR HFA [Concomitant]
     Active Substance: ALBUTEROL SULFATE
  15. LAMICTAL [Concomitant]
     Active Substance: LAMOTRIGINE
  16. POTASSIUM [Concomitant]
     Active Substance: POTASSIUM

REACTIONS (1)
  - Chest pain [Recovered/Resolved]
